FAERS Safety Report 4698396-9 (Version None)
Quarter: 2005Q2

REPORT INFORMATION
  Report Type: 
  Country: None (occurrence: None)
  Receive Date: 20050621
  Receipt Date: 20050608
  Transmission Date: 20051028
  Serious: Yes (Other)
  Sender: FDA-Public Use
  Company Number: EWC050644418

PATIENT
  Age: 58 Year
  Sex: Female

DRUGS (3)
  1. YENTREVE (DULOXETINE HYDROCHLORIDE) [Suspect]
     Indication: URINARY INCONTINENCE
     Dosage: 2 DSG FORM DAY
     Dates: start: 20050316, end: 20050509
  2. FOSAMAX [Concomitant]
  3. MAXI-KALZ (CALCIUM CITRATE) [Concomitant]

REACTIONS (2)
  - EYELID OEDEMA [None]
  - LIVER FUNCTION TEST ABNORMAL [None]
